FAERS Safety Report 7062962-6 (Version None)
Quarter: 2010Q4

REPORT INFORMATION
  Report Type: 
  Country: None (occurrence: None)
  Receive Date: 20101026
  Receipt Date: 20100325
  Transmission Date: 20110411
  Serious: Yes (Other)
  Sender: FDA-Public Use
  Company Number: US-PFIZER INC-2010039343

PATIENT
  Sex: Female
  Weight: 61.2 kg

DRUGS (8)
  1. LIPITOR [Suspect]
     Indication: BLOOD CHOLESTEROL INCREASED
     Dosage: 40 MG, 1X/DAY
     Route: 048
  2. LOPRESSOR [Concomitant]
     Indication: HYPERTENSION
     Dosage: 50 MG, 1X/DAY
     Route: 048
  3. SYNTHROID [Concomitant]
     Indication: THYROID DISORDER
     Dosage: 112 UG, 1X/DAY
     Route: 048
  4. XANAX [Concomitant]
     Indication: STRESS
     Dosage: 1 MG, AS NEEDED
     Route: 048
  5. DONNATAL [Concomitant]
     Indication: ABDOMINAL PAIN UPPER
     Dosage: 145 MG, 2X/DAY
     Route: 048
  6. ACETYLSALICYLIC ACID [Concomitant]
     Indication: CARDIAC DISORDER
     Dosage: 81 MG, 1X/DAY
     Route: 048
  7. PROTONIX [Concomitant]
     Indication: GASTROOESOPHAGEAL REFLUX DISEASE
     Dosage: 40 MG, 1X/DAY
     Route: 048
  8. ULTRAM [Concomitant]
     Indication: BACK DISORDER
     Dosage: 50 MG, 1X/DAY
     Route: 048

REACTIONS (1)
  - MEMORY IMPAIRMENT [None]
